FAERS Safety Report 9551607 (Version 1)
Quarter: 2013Q2

REPORT INFORMATION
  Report Type: Spontaneous
  Country: US (occurrence: None)
  Receive Date: 20130627
  Receipt Date: 20130627
  Transmission Date: 20140414
  Serious: Yes (Other)
  Sender: FDA-Public Use
  Company Number: 1000044055

PATIENT
  Sex: Female

DRUGS (1)
  1. LINZESS [Suspect]
     Indication: IRRITABLE BOWEL SYNDROME

REACTIONS (4)
  - Diarrhoea [None]
  - Abdominal pain [None]
  - Flatulence [None]
  - Abdominal distension [None]
